FAERS Safety Report 8878040 (Version 1)
Quarter: 2012Q4

REPORT INFORMATION
  Report Type: 
  Country: US (occurrence: US)
  Receive Date: 20121025
  Receipt Date: 20121025
  Transmission Date: 20130627
  Serious: No
  Sender: FDA-Public Use
  Company Number: US-AMGEN-USASP2012020529

PATIENT
  Sex: Male
  Weight: 80.73 kg

DRUGS (4)
  1. ENBREL [Suspect]
     Indication: PRODUCT USED FOR UNKNOWN INDICATION
     Dosage: 50 mg, qwk
     Route: 058
  2. SIMVASTATIN [Concomitant]
     Dosage: 10 mg, UNK
  3. IBUPROFEN [Concomitant]
     Dosage: UNK
  4. CENTRUM SILVER                     /01292501/ [Concomitant]
     Dosage: UNK

REACTIONS (2)
  - Injection site erythema [Recovered/Resolved]
  - Injection site pruritus [Recovered/Resolved]
